FAERS Safety Report 5885169-4 (Version None)
Quarter: 2008Q3

REPORT INFORMATION
  Report Type: 
  Country: None (occurrence: None)
  Receive Date: 20080915
  Receipt Date: 20080915
  Transmission Date: 20090109
  Serious: No
  Sender: FDA-Public Use
  Company Number: None

PATIENT

DRUGS (1)
  1. CEPHALEXIN [Suspect]
     Dosage: 500MG 3 PER DAY PO
     Route: 048

REACTIONS (7)
  - ALTERED STATE OF CONSCIOUSNESS [None]
  - CLUMSINESS [None]
  - CONVULSION [None]
  - COORDINATION ABNORMAL [None]
  - DEHYDRATION [None]
  - FALL [None]
  - INSOMNIA [None]
